FAERS Safety Report 16775893 (Version 2)
Quarter: 2019Q3

REPORT INFORMATION
  Report Type: Spontaneous
  Country: SE (occurrence: SE)
  Receive Date: 20190905
  Receipt Date: 20190911
  Transmission Date: 20191005
  Serious: Yes (Other)
  Sender: FDA-Public Use
  Company Number: SE-IPSEN BIOPHARMACEUTICALS, INC.-2019-14128

PATIENT
  Age: 60 Year
  Sex: Female

DRUGS (2)
  1. DYSPORT [Suspect]
     Active Substance: ABOBOTULINUMTOXINA
     Indication: OFF LABEL USE
  2. DYSPORT [Suspect]
     Active Substance: ABOBOTULINUMTOXINA
     Indication: MUSCLE SPASTICITY
     Dosage: 300 UNITS IN RIGHT ADDUCTOR, LONGUS, MAGNUS, BREVIS AND 200 UNITS IN LEFT ADDUCTOR LONGUS AND MAGNUS
     Route: 030
     Dates: start: 20190513, end: 20190513

REACTIONS (6)
  - Muscle oedema [Unknown]
  - Off label use [Unknown]
  - Muscle necrosis [Unknown]
  - Muscle spasms [Unknown]
  - Muscle swelling [Recovering/Resolving]
  - C-reactive protein increased [Unknown]

NARRATIVE: CASE EVENT DATE: 2019
